FAERS Safety Report 4941286-4 (Version None)
Quarter: 2006Q1

REPORT INFORMATION
  Report Type: 
  Country: None (occurrence: None)
  Receive Date: 20060310
  Receipt Date: 20060302
  Transmission Date: 20060701
  Serious: Yes (Hospitalization)
  Sender: FDA-Public Use
  Company Number: A0595885A

PATIENT
  Sex: Female

DRUGS (11)
  1. LAMICTAL [Suspect]
     Indication: BIPOLAR DISORDER
     Dosage: SEE DOSAGE TEXT ORAL
     Route: 048
     Dates: start: 20050701
  2. CARBAMAZEPINE [Concomitant]
  3. PREMPRO [Concomitant]
  4. GLIPIZIDE [Concomitant]
  5. SIMVASTATIN [Concomitant]
  6. ZOLPIDEM TARTRATE [Concomitant]
  7. TRETINOIN [Concomitant]
  8. VENLAFAXINE HCL [Concomitant]
  9. MULTI-VITAMIN [Concomitant]
  10. CALCIUM SALT [Concomitant]
  11. TRETINOIN [Concomitant]

REACTIONS (2)
  - RASH PRURITIC [None]
  - SUICIDE ATTEMPT [None]
